FAERS Safety Report 8997128 (Version 2)
Quarter: 2013Q1

REPORT INFORMATION
  Report Type: Spontaneous
  Country: US (occurrence: US)
  Receive Date: 20130104
  Receipt Date: 20130115
  Transmission Date: 20140127
  Serious: Yes (Life-Threatening, Hospitalization, Other)
  Sender: FDA-Public Use
  Company Number: US-JNJFOC-20130100036

PATIENT
  Sex: Female
  Weight: 74.84 kg

DRUGS (18)
  1. DOXORUBICIN HYDROCHLORIDE [Suspect]
     Indication: OVARIAN CANCER
     Dosage: EVERY 28 DAYS
     Route: 042
     Dates: start: 20120917, end: 20121005
  2. UNSPECIFIED STUDY DRUG [Suspect]
     Indication: OVARIAN CANCER
     Dosage: DAYS 1, 3, 5, 15, 17 AND 19
     Route: 042
     Dates: start: 20120917, end: 20121019
  3. UNSPECIFIED STUDY DRUG [Suspect]
     Indication: SCAN
     Route: 042
     Dates: start: 20120910, end: 20120910
  4. FOLIC ACID [Suspect]
     Indication: SCAN
     Route: 042
     Dates: start: 20120910, end: 20120910
  5. TOPOTECAN [Suspect]
     Indication: OVARIAN CANCER
     Route: 065
     Dates: start: 20121105, end: 20121109
  6. TOPOTECAN [Suspect]
     Indication: CHEMOTHERAPY
     Route: 065
     Dates: start: 20121105, end: 20121109
  7. VICODIN [Concomitant]
     Indication: ABDOMINAL PAIN
     Route: 048
  8. COLACE [Concomitant]
     Indication: CONSTIPATION
     Route: 048
     Dates: start: 20120917
  9. REGLAN [Concomitant]
     Indication: PROPHYLAXIS OF NAUSEA AND VOMITING
     Dosage: NIGHTLY
     Route: 048
  10. ZOFRAN [Concomitant]
     Indication: PROPHYLAXIS OF NAUSEA AND VOMITING
     Dosage: AS NEEDED
     Route: 048
     Dates: start: 20121105
  11. DEXAMETHASONE [Concomitant]
     Indication: PROPHYLACTIC CHEMOTHERAPY
     Route: 065
     Dates: start: 20121105
  12. SENNA LAXATIVE [Concomitant]
     Indication: CONSTIPATION
     Dosage: 1-2 TABLETS AT NIGHT, 8.6 MG/50 NG
     Route: 048
  13. ACETAMINOPHEN [Concomitant]
     Indication: PYREXIA
     Dosage: AS NEEDED
     Route: 048
  14. ACETAMINOPHEN [Concomitant]
     Indication: PAIN
     Dosage: AS NEEDED
     Route: 048
  15. IBUPROFEN [Concomitant]
     Route: 065
  16. EMLA (LIDOCAINE/PRILOCAINE) [Concomitant]
     Dosage: 2.3 %
     Route: 061
  17. MIRALAX [Concomitant]
     Indication: CONSTIPATION
     Dosage: 17 GM
     Route: 048
  18. OMEPRAZOLE [Concomitant]
     Dosage: BEFORE NOON
     Route: 048

REACTIONS (3)
  - Neutropenia [Recovered/Resolved]
  - Syncope [Recovered/Resolved]
  - Ovarian cancer [Unknown]
